FAERS Safety Report 8550516-1 (Version None)
Quarter: 2012Q3

REPORT INFORMATION
  Report Type: 
  Country: None (occurrence: None)
  Receive Date: 20120730
  Receipt Date: 20120720
  Transmission Date: 20120928
  Serious: Yes (Other)
  Sender: FDA-Public Use
  Company Number: US-BAYER-2012-044254

PATIENT
  Age: 67 Year
  Sex: Female

DRUGS (7)
  1. NEXAVAR [Suspect]
     Indication: HEPATIC NEOPLASM MALIGNANT NON-RESECTABLE
     Dosage: 200 MG, DAILY
     Route: 048
     Dates: start: 20120403
  2. NEXAVAR [Suspect]
  3. NEXAVAR [Suspect]
     Dosage: 200 MG, BID
     Dates: start: 20120430, end: 20120515
  4. ANTIHYPERTENSIVES [Concomitant]
  5. CARDIAC THERAPY [Concomitant]
  6. NEXAVAR [Suspect]
     Dosage: 400 MG, BID
     Dates: end: 20120515
  7. NEXAVAR [Suspect]
     Dosage: 200 MG, BID
     Route: 048
     Dates: start: 20120521, end: 20120522

REACTIONS (20)
  - MUSCULOSKELETAL DISCOMFORT [None]
  - HEPATIC ENZYME INCREASED [None]
  - FAECES DISCOLOURED [None]
  - NAUSEA [None]
  - ADVERSE DRUG REACTION [None]
  - DIARRHOEA [None]
  - PYREXIA [None]
  - THYROID DISORDER [None]
  - ALPHA 1 FOETOPROTEIN INCREASED [None]
  - OROPHARYNGEAL SPASM [None]
  - VULVOVAGINAL RASH [None]
  - SKIN DISORDER [None]
  - RASH [None]
  - CHILLS [None]
  - HYPERTENSION [None]
  - PAIN OF SKIN [None]
  - HERPES ZOSTER [None]
  - CRANIAL NERVE DISORDER [None]
  - DIZZINESS [None]
  - DYSPEPSIA [None]
